FAERS Safety Report 16724874 (Version 3)
Quarter: 2021Q4

REPORT INFORMATION
  Report Type: Spontaneous
  Country: US (occurrence: US)
  Receive Date: 20190821
  Receipt Date: 20211229
  Transmission Date: 20220303
  Serious: No
  Sender: FDA-Public Use
  Company Number: US-PFIZER INC-2019357585

PATIENT
  Age: 39 Year
  Sex: Female

DRUGS (11)
  1. IBRANCE [Suspect]
     Active Substance: PALBOCICLIB
     Indication: Breast cancer female
     Dosage: 125 MG, CYCLIC (DAILY FOR 21 DAYS FOLLOWED BY A 7 DAY BREAK)
     Route: 048
     Dates: start: 201907
  2. IBRANCE [Suspect]
     Active Substance: PALBOCICLIB
     Dosage: 125 MG, CYCLIC (TAKE 1 TABLET (125MG) BY MOUTH DAILY FOR 21 DAYS FOLLOWED BY 7 DAY BREAK
     Route: 048
  3. VITAMIN D3 [Concomitant]
     Active Substance: CHOLECALCIFEROL
     Dosage: UNK
  4. CALCIUM MAGNESIUM ZINC [CALCIUM;MAGNESIUM;ZINC] [Concomitant]
     Dosage: UNK
  5. MELATONIN [Concomitant]
     Active Substance: MELATONIN
     Dosage: UNK
  6. LORAZEPAM [Concomitant]
     Active Substance: LORAZEPAM
     Dosage: UNK
  7. CANDESARTAN CILEXETIL [Concomitant]
     Active Substance: CANDESARTAN CILEXETIL
     Dosage: UNK
  8. UBIQUINOL [Concomitant]
     Active Substance: UBIQUINOL
     Dosage: UNK
  9. OMEPRAZOLE [Concomitant]
     Active Substance: OMEPRAZOLE
     Dosage: UNK
  10. EFFEXOR [Concomitant]
     Active Substance: VENLAFAXINE HYDROCHLORIDE
     Dosage: UNK
  11. LETROZOLE [Concomitant]
     Active Substance: LETROZOLE
     Dosage: UNK

REACTIONS (4)
  - Hot flush [Unknown]
  - Fatigue [Recovering/Resolving]
  - Stomatitis [Recovering/Resolving]
  - Somnolence [Unknown]
